FAERS Safety Report 19689915 (Version 1)
Quarter: 2021Q3

REPORT INFORMATION
  Report Type: Spontaneous
  Country: US (occurrence: US)
  Receive Date: 20210811
  Receipt Date: 20210811
  Transmission Date: 20211014
  Serious: No
  Sender: FDA-Public Use
  Company Number: None

PATIENT
  Age: 69 Year
  Sex: Male
  Weight: 101.25 kg

DRUGS (7)
  1. LOW DOSE ASPIRIN [Concomitant]
     Active Substance: ASPIRIN
  2. CENTRUM SILVER MULTI VITAMINS [Concomitant]
  3. DUTASTERIDE 0.5 MG [Suspect]
     Active Substance: DUTASTERIDE
     Indication: BENIGN PROSTATIC HYPERPLASIA
     Dosage: ?          QUANTITY:1 CAPSULE(S);?
     Route: 048
     Dates: start: 20201024, end: 20210215
  4. FISH OIL [Concomitant]
     Active Substance: FISH OIL
  5. DUTASTERIDE .5 MG / DAY GENOLOSS / GENPHARMA [Suspect]
     Active Substance: DUTASTERIDE
     Indication: BENIGN PROSTATIC HYPERPLASIA
     Dosage: ?          QUANTITY:1 CAPSULE(S);?
     Route: 048
  6. VITAMIN D3 [Concomitant]
     Active Substance: CHOLECALCIFEROL
  7. OSTEO BI?FLEX TRIPLE STRENGTH [Concomitant]

REACTIONS (3)
  - Product formulation issue [None]
  - Therapy non-responder [None]
  - Product availability issue [None]
